FAERS Safety Report 21978431 (Version 1)
Quarter: 2023Q1

REPORT INFORMATION
  Report Type: Spontaneous
  Country: US (occurrence: None)
  Receive Date: 20230208
  Receipt Date: 20230208
  Transmission Date: 20230417
  Serious: No
  Sender: FDA-Public Use
  Company Number: None

PATIENT
  Age: 47 Year
  Sex: Female

DRUGS (3)
  1. ENBREL [Suspect]
     Active Substance: ETANERCEPT
     Indication: Psoriasis
     Dosage: FREQUENCY : TWICE A WEEK;?
     Route: 058
     Dates: start: 202211
  2. ENBREL [Suspect]
     Active Substance: ETANERCEPT
     Indication: Psoriasis
  3. ENBREL [Suspect]
     Active Substance: ETANERCEPT
     Indication: Psoriatic arthropathy

REACTIONS (2)
  - Sinusitis [None]
  - Swelling [None]
